FAERS Safety Report 10552793 (Version 2)
Quarter: 2016Q1

REPORT INFORMATION
  Report Type: Report from Study
  Country: CA (occurrence: CA)
  Receive Date: 20141029
  Receipt Date: 20160104
  Transmission Date: 20160525
  Serious: Yes (Hospitalization)
  Sender: FDA-Public Use
  Company Number: CA-ABBVIE-14K-028-1299920-00

PATIENT
  Age: 49 Year
  Sex: Female

DRUGS (1)
  1. HUMIRA [Suspect]
     Active Substance: ADALIMUMAB
     Indication: CROHN^S DISEASE
     Route: 058
     Dates: start: 20090722

REACTIONS (2)
  - Volvulus [Recovered/Resolved]
  - Abdominal pain lower [Recovered/Resolved]

NARRATIVE: CASE EVENT DATE: 20141010
